FAERS Safety Report 9284256 (Version 1)
Quarter: 2013Q2

REPORT INFORMATION
  Report Type: Spontaneous
  Country: NO (occurrence: NO)
  Receive Date: 20130510
  Receipt Date: 20130510
  Transmission Date: 20140414
  Serious: Yes (Other)
  Sender: FDA-Public Use
  Company Number: NO-BRISTOL-MYERS SQUIBB COMPANY-18856187

PATIENT
  Age: 37 Year
  Sex: Male
  Weight: 70 kg

DRUGS (18)
  1. ABILIFY [Suspect]
     Indication: BIPOLAR DISORDER
     Dates: start: 20130419, end: 20130419
  2. LITHIONIT [Concomitant]
     Indication: BIPOLAR II DISORDER
     Dates: start: 20120815
  3. IMUREL [Concomitant]
     Indication: CROHN^S DISEASE
     Dates: start: 20130317
  4. DUROGESIC [Concomitant]
     Indication: PAIN
     Route: 062
     Dates: start: 20120810
  5. NEXIUM [Concomitant]
     Indication: PROPHYLAXIS
     Dosage: TAB
     Dates: start: 20120101
  6. IMIGRAN [Concomitant]
     Indication: MIGRAINE
     Dosage: TAB
     Dates: start: 20050410
  7. UNILOC [Concomitant]
     Indication: MIGRAINE PROPHYLAXIS
     Dosage: FILM-COATED TAB
     Dates: start: 20091012
  8. POLARAMIN [Concomitant]
     Indication: PRURITUS
     Dosage: TAB
     Dates: start: 20100601
  9. TRUXAL [Concomitant]
     Indication: ANXIETY
     Dosage: FILM-COATED TAB
     Dates: start: 20121005
  10. TRAMADOL [Concomitant]
     Indication: PAIN
     Dosage: CAPS
     Dates: start: 20121214
  11. NOZINAN [Concomitant]
     Indication: FEELING OF RELAXATION
     Dosage: COATED TAB
     Dates: start: 20090101
  12. AFIPRAN [Concomitant]
     Indication: NAUSEA
     Dosage: TAB
     Dates: start: 20050401
  13. OXYNORM [Concomitant]
     Indication: PAIN
     Dosage: CAPS
     Dates: start: 20120215
  14. NEURONTIN [Concomitant]
     Indication: NEURALGIA
     Dosage: CAPS
     Dates: start: 20110101
  15. STILNOCT [Concomitant]
     Indication: INSOMNIA
     Dosage: FILM-COATED TAB
     Dates: start: 20100310
  16. QUETIAPINE [Concomitant]
     Indication: PSYCHOTIC DISORDER
     Dosage: FIL COATED TABS
     Dates: start: 20121219
  17. STESOLID [Concomitant]
     Indication: SEDATIVE THERAPY
     Dosage: TAB
     Dates: start: 20110215
  18. PARACET [Concomitant]
     Indication: PAIN
     Dates: start: 20080912

REACTIONS (3)
  - Amnesia [Recovered/Resolved]
  - Psychotic disorder [Recovered/Resolved]
  - Hypersensitivity [Recovered/Resolved]
